FAERS Safety Report 20582703 (Version 1)
Quarter: 2022Q1

REPORT INFORMATION
  Report Type: Report from Study
  Country: US (occurrence: US)
  Receive Date: 20220311
  Receipt Date: 20220311
  Transmission Date: 20220423
  Serious: Yes (Other)
  Sender: FDA-Public Use
  Company Number: US-ABBVIE-21K-163-3893436-00

PATIENT
  Sex: Female

DRUGS (4)
  1. IMBRUVICA [Suspect]
     Active Substance: IBRUTINIB
     Indication: Chronic lymphocytic leukaemia
     Route: 048
  2. IMBRUVICA [Suspect]
     Active Substance: IBRUTINIB
     Route: 048
     Dates: start: 202104, end: 20210818
  3. IMBRUVICA [Suspect]
     Active Substance: IBRUTINIB
     Route: 048
     Dates: start: 202104
  4. CEFZIL [Concomitant]
     Active Substance: CEFPROZIL
     Indication: Product used for unknown indication

REACTIONS (6)
  - Lung perforation [Unknown]
  - Bladder cancer recurrent [Unknown]
  - Bladder cancer [Recovering/Resolving]
  - Bladder cyst [Unknown]
  - Bladder spasm [Unknown]
  - Pneumonia [Unknown]
